FAERS Safety Report 10693074 (Version 2)
Quarter: 2015Q1

REPORT INFORMATION
  Report Type: Report from Study
  Country: NL (occurrence: NL)
  Receive Date: 20150106
  Receipt Date: 20150106
  Transmission Date: 20150720
  Serious: Yes (Hospitalization)
  Sender: FDA-Public Use
  Company Number: NL-ABBVIE-14P-114-1278882-00

PATIENT
  Age: 44 Year
  Sex: Female
  Weight: 68 kg

DRUGS (2)
  1. LUCRIN DEPOT [Suspect]
     Active Substance: LEUPROLIDE ACETATE
     Indication: MIGRAINE
     Route: 058
     Dates: start: 20140718, end: 20141107
  2. VENLAFAXINE [Concomitant]
     Active Substance: VENLAFAXINE HYDROCHLORIDE
     Indication: ANTIDEPRESSANT THERAPY
     Route: 048

REACTIONS (3)
  - Headache [Recovered/Resolved]
  - Hot flush [Recovering/Resolving]
  - Oophorectomy [Recovered/Resolved]

NARRATIVE: CASE EVENT DATE: 201408
